FAERS Safety Report 4357232-0 (Version None)
Quarter: 2004Q2

REPORT INFORMATION
  Report Type: 
  Country: None (occurrence: None)
  Receive Date: 20040507
  Receipt Date: 20040415
  Transmission Date: 20050107
  Serious: Yes (Hospitalization, Other)
  Sender: FDA-Public Use
  Company Number: US_030493862

PATIENT
  Age: 42 Year
  Sex: Female
  Weight: 107 kg

DRUGS (11)
  1. ZYPREXA [Suspect]
     Indication: SCHIZOPHRENIA
     Dates: start: 20001206, end: 20010215
  2. ZESTRIL [Concomitant]
  3. ZOLOFT [Concomitant]
  4. ASPIRIN [Concomitant]
  5. DESYREL [Concomitant]
  6. VIOXX [Concomitant]
  7. LOPRESSOR [Concomitant]
  8. CELEBREX [Concomitant]
  9. COMBIVENT [Concomitant]
  10. PEPCID [Concomitant]
  11. ULTRAM [Concomitant]

REACTIONS (37)
  - ACIDOSIS [None]
  - ANAEMIA [None]
  - ASTHMA [None]
  - ATELECTASIS [None]
  - ATRIAL PRESSURE INCREASED [None]
  - BACTERAEMIA [None]
  - BLOOD GASES ABNORMAL [None]
  - BLOOD GLUCOSE INCREASED [None]
  - BLOOD OSMOLARITY DECREASED [None]
  - BLOOD POTASSIUM INCREASED [None]
  - BRONCHITIS [None]
  - COMA [None]
  - CYSTITIS [None]
  - DIABETES MELLITUS [None]
  - DIARRHOEA [None]
  - FUNGAL INFECTION [None]
  - HAEMOGLOBIN DECREASED [None]
  - HEPATIC STEATOSIS [None]
  - HYPERGLYCAEMIA [None]
  - HYPERNATRAEMIA [None]
  - HYPOKALAEMIA [None]
  - MENTAL STATUS CHANGES [None]
  - METABOLIC ENCEPHALOPATHY [None]
  - PANCREATITIS [None]
  - PANCREATITIS ACUTE [None]
  - PNEUMONIA [None]
  - RENAL FAILURE ACUTE [None]
  - RESPIRATORY FAILURE [None]
  - SPUTUM CULTURE POSITIVE [None]
  - STAPHYLOCOCCAL INFECTION [None]
  - SYSTEMIC INFLAMMATORY RESPONSE SYNDROME [None]
  - TACHYCARDIA [None]
  - THROMBOCYTOPENIA [None]
  - TRACHEOBRONCHITIS [None]
  - URINE OUTPUT DECREASED [None]
  - VAGINITIS [None]
  - WHITE BLOOD CELL COUNT INCREASED [None]
